FAERS Safety Report 6383951-0 (Version None)
Quarter: 2009Q4

REPORT INFORMATION
  Report Type: 
  Country: None (occurrence: None)
  Receive Date: 20091001
  Receipt Date: 20090924
  Transmission Date: 20100525
  Serious: Yes (Hospitalization)
  Sender: FDA-Public Use
  Company Number: JP-AVENTIS-200711748JP

PATIENT
  Age: 53 Year
  Sex: Female
  Weight: 43 kg

DRUGS (11)
  1. ARAVA [Suspect]
     Indication: RHEUMATOID ARTHRITIS
     Route: 048
     Dates: start: 20040701, end: 20050101
  2. ARAVA [Suspect]
     Route: 048
     Dates: start: 20050101, end: 20070226
  3. ARAVA [Suspect]
     Route: 048
     Dates: start: 20070227, end: 20070301
  4. ARAVA [Suspect]
     Route: 048
     Dates: start: 20070402, end: 20070501
  5. ARAVA [Suspect]
     Route: 048
     Dates: start: 20070508, end: 20070612
  6. PREDNISOLONE [Concomitant]
     Indication: RHEUMATOID ARTHRITIS
     Route: 048
  7. LOXONIN                            /00890701/ [Concomitant]
     Indication: RHEUMATOID ARTHRITIS
     Route: 048
     Dates: end: 20070402
  8. SELBEX [Concomitant]
     Indication: RHEUMATOID ARTHRITIS
     Route: 048
     Dates: end: 20070721
  9. RISEDRONATE SODIUM [Concomitant]
     Indication: OSTEOPOROSIS
     Route: 048
     Dates: end: 20070508
  10. GLAKAY [Concomitant]
     Indication: OSTEOPOROSIS
     Route: 048
     Dates: end: 20070508
  11. HYPEN [Concomitant]
     Indication: RHEUMATOID ARTHRITIS
     Route: 048
     Dates: start: 20070403, end: 20070721

REACTIONS (2)
  - HEPATIC FUNCTION ABNORMAL [None]
  - POLYMYOSITIS [None]
